FAERS Safety Report 7727764-3 (Version None)
Quarter: 2011Q3

REPORT INFORMATION
  Report Type: 
  Country: None (occurrence: None)
  Receive Date: 20110902
  Receipt Date: 20110824
  Transmission Date: 20111222
  Serious: Yes (Other)
  Sender: FDA-Public Use
  Company Number: JP-GENENTECH-321382

PATIENT
  Age: 66 Year
  Sex: Male

DRUGS (4)
  1. GRTPA [Suspect]
     Indication: THROMBOTIC CEREBRAL INFARCTION
     Dosage: 30.2 ML, UNK
     Route: 042
     Dates: start: 20110212
  2. RADICUT [Suspect]
     Indication: THROMBOTIC CEREBRAL INFARCTION
     Dosage: 60 MG, UNK
     Route: 041
     Dates: start: 20110212, end: 20110214
  3. HEPARIN [Concomitant]
     Indication: PRODUCT USED FOR UNKNOWN INDICATION
     Dosage: UNK
     Route: 041
     Dates: start: 20110213, end: 20110223
  4. CLOPIDOGREL [Concomitant]
     Indication: PRODUCT USED FOR UNKNOWN INDICATION
     Dosage: UNK
     Route: 048
     Dates: start: 20110223

REACTIONS (1)
  - BLOOD CREATINE PHOSPHOKINASE INCREASED [None]
